FAERS Safety Report 26116127 (Version 1)
Quarter: 2025Q4

REPORT INFORMATION
  Report Type: Spontaneous
  Country: US (occurrence: US)
  Receive Date: 20251203
  Receipt Date: 20251203
  Transmission Date: 20260118
  Serious: Yes (Hospitalization)
  Sender: IPSEN BIOPHARMACEUTICALS, INC.
  Company Number: US-IPSEN Group, Research and Development-2025-29385

PATIENT
  Age: 63 Year
  Sex: Female

DRUGS (1)
  1. LANREOTIDE ACETATE [Suspect]
     Active Substance: LANREOTIDE ACETATE
     Indication: Carcinoid syndrome

REACTIONS (10)
  - Hyperkalaemia [Unknown]
  - Hypotension [Unknown]
  - Sepsis [Unknown]
  - Cardiac arrest [Unknown]
  - Ischaemia [Unknown]
  - Metastases to bone [Unknown]
  - Pulmonary hypertension [Unknown]
  - Cardiac valve disease [Unknown]
  - Right ventricular dysfunction [Unknown]
  - Treatment noncompliance [Unknown]
